FAERS Safety Report 9914259 (Version 2)
Quarter: 2014Q3

REPORT INFORMATION
  Report Type: Report from Study
  Country: CA (occurrence: CA)
  Receive Date: 20140220
  Receipt Date: 20140818
  Transmission Date: 20150326
  Serious: Yes (Other)
  Sender: FDA-Public Use
  Company Number: CA-BRISTOL-MYERS SQUIBB COMPANY-20212643

PATIENT
  Age: 40 Year
  Sex: Female

DRUGS (8)
  1. FOLIC ACID. [Concomitant]
     Active Substance: FOLIC ACID
  2. PREVACID [Concomitant]
     Active Substance: LANSOPRAZOLE
  3. LYRICA [Concomitant]
     Active Substance: PREGABALIN
  4. FLEXERIL [Concomitant]
     Active Substance: CYCLOBENZAPRINE HYDROCHLORIDE
  5. METHOTREXATE [Concomitant]
     Active Substance: METHOTREXATE
  6. EFFEXOR [Concomitant]
     Active Substance: VENLAFAXINE HYDROCHLORIDE
  7. ORENCIA [Suspect]
     Active Substance: ABATACEPT
     Indication: RHEUMATOID ARTHRITIS
     Dosage: 1 DF = 1000 UNITS.
     Route: 042
     Dates: start: 20090512
  8. PIROXICAM. [Concomitant]
     Active Substance: PIROXICAM

REACTIONS (2)
  - Mass [Unknown]
  - Arthropathy [Unknown]
